FAERS Safety Report 21300424 (Version 1)
Quarter: 2022Q3

REPORT INFORMATION
  Report Type: Spontaneous
  Country: US (occurrence: US)
  Receive Date: 20220907
  Receipt Date: 20220907
  Transmission Date: 20221026
  Serious: Yes (Hospitalization)
  Sender: FDA-Public Use
  Company Number: US-HETERO-HET2022US02145

PATIENT
  Age: 63 Year
  Sex: Male

DRUGS (2)
  1. LITHIUM [Suspect]
     Active Substance: LITHIUM
     Indication: Suicide attempt
     Dosage: 30 PILLS OF 300 MG
     Route: 048
  2. PROPRANOLOL HYDROCHLORIDE [Suspect]
     Active Substance: PROPRANOLOL HYDROCHLORIDE
     Indication: Suicide attempt
     Dosage: 20 MG, 30 PILLS
     Route: 048

REACTIONS (9)
  - Intentional overdose [Unknown]
  - Hypoglycaemia [Recovered/Resolved]
  - Abdominal pain [Recovered/Resolved]
  - Hypoaesthesia [Recovered/Resolved]
  - Electrocardiogram QT prolonged [Recovered/Resolved]
  - Vomiting [Recovered/Resolved]
  - Diarrhoea [Recovered/Resolved]
  - Nausea [Recovered/Resolved]
  - Bradycardia [Recovered/Resolved]
